FAERS Safety Report 16957019 (Version 2)
Quarter: 2019Q4

REPORT INFORMATION
  Report Type: Spontaneous
  Country: TR (occurrence: TR)
  Receive Date: 20191024
  Receipt Date: 20191210
  Transmission Date: 20200122
  Serious: Yes (Other)
  Sender: FDA-Public Use
  Company Number: TR-BAYER-2019-186213

PATIENT
  Age: 67 Year
  Sex: Female
  Weight: 94 kg

DRUGS (5)
  1. NEXAVAR [Suspect]
     Active Substance: SORAFENIB
     Indication: HEPATIC MASS
     Dosage: DAILY DOSE 600 MG (2 TABLETS AT THE MORNING AND 1 TABLET AT THE EVENING)
     Route: 048
  2. NEXAVAR [Suspect]
     Active Substance: SORAFENIB
     Indication: HEPATIC MASS
     Dosage: DAILY DOSE 400 MG (1 TABLET IN THE MORNING AND 1 TABLET IN THE EVENING)
  3. FLUDEX [INDAPAMIDE] [Concomitant]
     Active Substance: INDAPAMIDE
     Dosage: 2 TABLETS
     Route: 048
  4. INSULIN [Concomitant]
     Active Substance: INSULIN NOS
     Dosage: UNK UNK, TID
     Route: 058
  5. EXFORGE [Concomitant]
     Active Substance: AMLODIPINE BESYLATE\VALSARTAN
     Dosage: 2 TABLETS BID
     Route: 048

REACTIONS (9)
  - Constipation [Recovered/Resolved]
  - Infection [None]
  - Limb injury [Recovered/Resolved]
  - Swelling face [Recovered/Resolved]
  - Hepatic mass [Recovering/Resolving]
  - Dysstasia [Not Recovered/Not Resolved]
  - Alopecia [Recovered/Resolved]
  - Peripheral swelling [Recovered/Resolved]
  - Vulvovaginal pruritus [Not Recovered/Not Resolved]

NARRATIVE: CASE EVENT DATE: 201911
